FAERS Safety Report 11159904 (Version 1)
Quarter: 2015Q2

REPORT INFORMATION
  Report Type: Spontaneous
  Country: US (occurrence: US)
  Receive Date: 20150603
  Receipt Date: 20150603
  Transmission Date: 20150821
  Serious: Yes (Hospitalization)
  Sender: FDA-Public Use
  Company Number: US-JNJFOC-20150514126

PATIENT
  Age: 47 Year
  Sex: Female

DRUGS (1)
  1. IBUPROFEN. [Suspect]
     Active Substance: IBUPROFEN
     Indication: HEADACHE
     Dosage: DOSE: 14-56 TABLETS OF 800 MG
     Route: 065

REACTIONS (3)
  - Hyperammonaemia [Recovering/Resolving]
  - Blood electrolytes abnormal [Recovered/Resolved]
  - Extra dose administered [Unknown]
